FAERS Safety Report 19465488 (Version 1)
Quarter: 2021Q2

REPORT INFORMATION
  Report Type: Spontaneous
  Country: FR (occurrence: FR)
  Receive Date: 20210625
  Receipt Date: 20210625
  Transmission Date: 20210717
  Serious: Yes (Life-Threatening, Hospitalization)
  Sender: FDA-Public Use
  Company Number: FR-TEVA-2021-FR-1924015

PATIENT
  Age: 23 Year
  Sex: Female
  Weight: 74 kg

DRUGS (7)
  1. LITHIUM. [Suspect]
     Active Substance: LITHIUM
     Route: 065
  2. QUETIAPINE. [Concomitant]
     Active Substance: QUETIAPINE
  3. ZOPICLONE [Suspect]
     Active Substance: ZOPICLONE
     Route: 048
  4. AKINETON [Concomitant]
     Active Substance: BIPERIDEN HYDROCHLORIDE
  5. CHLORPROMAZINE. [Concomitant]
     Active Substance: CHLORPROMAZINE
  6. DIAZEPAM. [Suspect]
     Active Substance: DIAZEPAM
     Indication: BEHAVIOUR DISORDER
     Dosage: 10 MG
     Route: 048
     Dates: start: 20210218, end: 20210218
  7. LOXAPINE BASE [Suspect]
     Active Substance: LOXAPINE
     Indication: BEHAVIOUR DISORDER
     Dosage: 50MG ON 02/18/2021 AND 300MG ON 02/19/2021 , UNIOT DOSE : 350 MG
     Route: 048
     Dates: start: 20210218, end: 20210219

REACTIONS (2)
  - Neuroleptic malignant syndrome [Recovering/Resolving]
  - Multiple organ dysfunction syndrome [Recovering/Resolving]

NARRATIVE: CASE EVENT DATE: 20210221
